FAERS Safety Report 5151671-6 (Version None)
Quarter: 2006Q4

REPORT INFORMATION
  Report Type: 
  Country: None (occurrence: None)
  Receive Date: 20061109
  Receipt Date: 20061025
  Transmission Date: 20070319
  Serious: Yes (Hospitalization)
  Sender: FDA-Public Use
  Company Number: US018763

PATIENT
  Age: 60 Year
  Sex: Male
  Weight: 108.8633 kg

DRUGS (13)
  1. ACTIQ [Suspect]
     Indication: BACK PAIN
     Dosage: 1200 UG EVERY 2 TO 3 HOURS OR UP TO 10 PER DAY BUCCAL
     Route: 002
     Dates: end: 20060401
  2. ACTIQ [Suspect]
     Indication: NEUROPATHY
     Dosage: 1200 UG EVERY 2 TO 3 HOURS OR UP TO 10 PER DAY BUCCAL
     Route: 002
     Dates: end: 20060401
  3. OXYCONTIN [Suspect]
     Indication: BACK PAIN
     Dosage: 320 MG BID ORAL
     Route: 048
     Dates: end: 20060401
  4. OXYCONTIN [Suspect]
     Indication: NEUROPATHY
     Dosage: 320 MG BID ORAL
     Route: 048
     Dates: end: 20060401
  5. FLEXERIL [Concomitant]
  6. PERCOCET [Concomitant]
  7. NEURONTIN [Concomitant]
  8. AMYTRIPTYLINE [Concomitant]
  9. ALLOPURINOL [Concomitant]
  10. ZOLOFT [Concomitant]
  11. PREVACID [Concomitant]
  12. FLOMAX [Concomitant]
  13. PROSOM [Concomitant]

REACTIONS (3)
  - DRUG WITHDRAWAL SYNDROME [None]
  - ECONOMIC PROBLEM [None]
  - WEIGHT DECREASED [None]
